FAERS Safety Report 19138112 (Version 6)
Quarter: 2022Q1

REPORT INFORMATION
  Report Type: Report from Study
  Country: CO (occurrence: CO)
  Receive Date: 20210415
  Receipt Date: 20220228
  Transmission Date: 20220423
  Serious: Yes (Other)
  Sender: FDA-Public Use
  Company Number: CO-ABBVIE-20K-036-3410505-00

PATIENT
  Sex: Male
  Weight: 116 kg

DRUGS (8)
  1. HUMIRA [Suspect]
     Active Substance: ADALIMUMAB
     Indication: Psoriasis
     Route: 058
     Dates: start: 20140909
  2. HUMIRA [Suspect]
     Active Substance: ADALIMUMAB
     Indication: Psoriasis
     Dosage: CITRATE FREE
     Route: 058
     Dates: end: 20210318
  3. HUMIRA [Suspect]
     Active Substance: ADALIMUMAB
     Dosage: CITRATE FREE
     Route: 058
     Dates: start: 2021, end: 20220204
  4. LOSARTAN [Concomitant]
     Active Substance: LOSARTAN
     Indication: Hypertension
     Dosage: 1 AT THE MORNING AND AT THE AFTERNOON.
     Route: 048
  5. HYDROCHLOROTHIAZIDE [Concomitant]
     Active Substance: HYDROCHLOROTHIAZIDE
     Indication: Hypertension
     Dosage: 1 AT THE MORNING AND AT THE AFTERNOON
     Route: 048
  6. ATORVASTATIN [Concomitant]
     Active Substance: ATORVASTATIN
     Indication: Prophylaxis
  7. FOLIC ACID [Concomitant]
     Active Substance: FOLIC ACID
     Indication: Arthralgia
  8. FOLIC ACID [Concomitant]
     Active Substance: FOLIC ACID
     Indication: Arthritis

REACTIONS (30)
  - Infarction [Not Recovered/Not Resolved]
  - Coronary vein stenosis [Not Recovered/Not Resolved]
  - Cardiac failure [Unknown]
  - Renal atrophy [Recovering/Resolving]
  - Malaise [Recovering/Resolving]
  - Renal disorder [Not Recovered/Not Resolved]
  - Weight increased [Recovering/Resolving]
  - Sneezing [Recovering/Resolving]
  - Kidney enlargement [Not Recovered/Not Resolved]
  - Weight decreased [Unknown]
  - Illness [Unknown]
  - Memory impairment [Not Recovered/Not Resolved]
  - Nasal congestion [Recovered/Resolved]
  - Cardiac disorder [Not Recovered/Not Resolved]
  - Arthritis [Not Recovered/Not Resolved]
  - Diabetes mellitus [Not Recovered/Not Resolved]
  - Nasopharyngitis [Recovered/Resolved]
  - Influenza [Recovering/Resolving]
  - Nasopharyngitis [Recovered/Resolved]
  - Influenza [Recovered/Resolved]
  - Musculoskeletal discomfort [Unknown]
  - Blood pressure increased [Not Recovered/Not Resolved]
  - Rabies [Unknown]
  - Hepatitis [Unknown]
  - Discomfort [Recovering/Resolving]
  - Pain [Recovering/Resolving]
  - Pain in extremity [Recovering/Resolving]
  - Peripheral swelling [Not Recovered/Not Resolved]
  - Influenza like illness [Recovered/Resolved]
  - Arthralgia [Not Recovered/Not Resolved]

NARRATIVE: CASE EVENT DATE: 20190101
